FAERS Safety Report 6059141-8 (Version None)
Quarter: 2009Q1

REPORT INFORMATION
  Report Type: 
  Country: None (occurrence: None)
  Receive Date: 20090130
  Receipt Date: 20090120
  Transmission Date: 20090719
  Serious: Yes (Hospitalization)
  Sender: FDA-Public Use
  Company Number: US-WYE-H07742809

PATIENT
  Sex: Female
  Weight: 65.38 kg

DRUGS (3)
  1. PREMARIN [Suspect]
     Indication: HORMONE REPLACEMENT THERAPY
     Route: 048
     Dates: start: 19900101, end: 20081105
  2. ASPIRIN [Concomitant]
     Dosage: QD
     Route: 048
  3. TALWIN [Concomitant]
     Indication: MUSCULOSKELETAL PAIN
     Dosage: UNKNOWN
     Route: 048

REACTIONS (2)
  - INTRA-ABDOMINAL HAEMORRHAGE [None]
  - PULMONARY EMBOLISM [None]
